FAERS Safety Report 8394914-8 (Version None)
Quarter: 2012Q2

REPORT INFORMATION
  Report Type: 
  Country: None (occurrence: None)
  Receive Date: 20120530
  Receipt Date: 20110603
  Transmission Date: 20120825
  Serious: No
  Sender: FDA-Public Use
  Company Number: US-GLAXOSMITHKLINE-A0931181A

PATIENT
  Age: 48 Year
  Sex: Male
  Weight: 71.8 kg

DRUGS (6)
  1. MULTI-VITAMIN [Concomitant]
  2. DIGOXIN [Concomitant]
  3. FLOLAN [Suspect]
     Indication: PULMONARY ARTERIAL HYPERTENSION
     Dosage: 40NGKM UNKNOWN
     Route: 065
     Dates: start: 20090127
  4. SIMVASTATIN [Concomitant]
  5. LETAIRIS [Concomitant]
  6. ASPIRIN [Concomitant]

REACTIONS (2)
  - TEMPOROMANDIBULAR JOINT SYNDROME [None]
  - DIPLOPIA [None]
